FAERS Safety Report 5072390-0 (Version None)
Quarter: 2006Q3

REPORT INFORMATION
  Report Type: 
  Country: None (occurrence: None)
  Receive Date: 20060710
  Receipt Date: 20051207
  Transmission Date: 20061208
  Serious: Yes (Other)
  Sender: FDA-Public Use
  Company Number: PROG00205004074

PATIENT
  Age: 28 Year
  Sex: Female
  Weight: 70.5 kg

DRUGS (3)
  1. PROMETRIUM [Suspect]
     Indication: PROGESTERONE DECREASED
     Dosage: SEE IMAGE
     Route: 067
     Dates: start: 20020801, end: 20020801
  2. PROMETRIUM [Suspect]
     Indication: PROGESTERONE DECREASED
     Dosage: SEE IMAGE
     Route: 067
     Dates: start: 20021001, end: 20021001
  3. PROGESTERONE [Suspect]
     Indication: ILL-DEFINED DISORDER
     Dates: start: 20020101

REACTIONS (2)
  - PHARYNGEAL OEDEMA [None]
  - URTICARIA [None]
